FAERS Safety Report 7272426-2 (Version None)
Quarter: 2011Q1

REPORT INFORMATION
  Report Type: 
  Country: None (occurrence: None)
  Receive Date: 20110203
  Receipt Date: 20101228
  Transmission Date: 20110831
  Serious: Yes (Hospitalization, Disabling)
  Sender: FDA-Public Use
  Company Number: US-BAYER-201029278NA

PATIENT
  Sex: Female
  Weight: 113.38 kg

DRUGS (8)
  1. OCELLA [Suspect]
     Dosage: UNK
     Dates: start: 20081201, end: 20090701
  2. YAZ [Suspect]
     Dosage: UNK
     Route: 048
     Dates: start: 20081201, end: 20090701
  3. UNCODEABLE ^UNCLASSIFIABLE^ [Concomitant]
  4. YASMIN [Suspect]
     Dosage: UNK
     Route: 048
     Dates: start: 20081201, end: 20090701
  5. UNCODEABLE ^UNCLASSIFIABLE^ [Concomitant]
  6. OCELLA [Suspect]
     Indication: MENSTRUAL CYCLE MANAGEMENT
     Dosage: UNK
     Dates: start: 20081201, end: 20090701
  7. YAZ [Suspect]
     Indication: MENSTRUAL CYCLE MANAGEMENT
     Dosage: UNK
     Route: 048
     Dates: start: 20081201, end: 20090701
  8. YASMIN [Suspect]
     Indication: MENSTRUAL CYCLE MANAGEMENT
     Dosage: UNK
     Route: 048
     Dates: start: 20081201, end: 20090701

REACTIONS (11)
  - RESPIRATORY FAILURE [None]
  - PAIN IN EXTREMITY [None]
  - PARAESTHESIA [None]
  - PULMONARY EMBOLISM [None]
  - SINUS TACHYCARDIA [None]
  - PERIPHERAL COLDNESS [None]
  - DYSPNOEA [None]
  - DIZZINESS [None]
  - CHEST DISCOMFORT [None]
  - DEEP VEIN THROMBOSIS [None]
  - HYPOAESTHESIA [None]
